FAERS Safety Report 16224596 (Version 1)
Quarter: 2019Q2

REPORT INFORMATION
  Report Type: Spontaneous
  Country: US (occurrence: US)
  Receive Date: 20190422
  Receipt Date: 20190422
  Transmission Date: 20190711
  Serious: Yes (Other)
  Sender: FDA-Public Use
  Company Number: US-FOUNDATIONCONSUMERHC-2018-US-018676

PATIENT
  Age: 35 Year
  Sex: Female
  Weight: 68.04 kg

DRUGS (2)
  1. PHENTERMINE. [Concomitant]
     Active Substance: PHENTERMINE
  2. PLAN B ONE-STEP [Suspect]
     Active Substance: LEVONORGESTREL
     Indication: POST COITAL CONTRACEPTION
     Dosage: 1.5 MG X 1 DOSE
     Route: 048
     Dates: start: 201803, end: 201803

REACTIONS (3)
  - Myalgia [Unknown]
  - Drug ineffective [Unknown]
  - Pregnancy after post coital contraception [Unknown]

NARRATIVE: CASE EVENT DATE: 201803
